FAERS Safety Report 4886837-3 (Version None)
Quarter: 2006Q1

REPORT INFORMATION
  Report Type: 
  Country: None (occurrence: None)
  Receive Date: 20060120
  Receipt Date: 20051124
  Transmission Date: 20060701
  Serious: Yes (Hospitalization)
  Sender: FDA-Public Use
  Company Number: FR-ABBOTT-05P-056-0318012-01

PATIENT
  Sex: Female

DRUGS (5)
  1. RITONAVIR SOFT GELATIN CAPSULES [Suspect]
     Indication: HIV INFECTION
     Route: 048
     Dates: start: 20040818
  2. TIPRANAVIR [Concomitant]
     Indication: HIV INFECTION
     Route: 048
     Dates: start: 20040818
  3. LAMIVUDINE [Concomitant]
     Indication: HIV INFECTION
     Dates: start: 20050124
  4. VIREAD [Concomitant]
     Indication: HIV INFECTION
     Dates: start: 20050124
  5. BACTRIM [Concomitant]
     Indication: INFECTION PROPHYLAXIS
     Dates: start: 20031021

REACTIONS (9)
  - BACTERAEMIA [None]
  - CHILLS [None]
  - DEHYDRATION [None]
  - DRUG INEFFECTIVE [None]
  - DRUG INTOLERANCE [None]
  - POSTOPERATIVE FEVER [None]
  - PYREXIA [None]
  - RECTAL CANCER [None]
  - RECTAL HAEMORRHAGE [None]
